FAERS Safety Report 8583258-7 (Version None)
Quarter: 2012Q3

REPORT INFORMATION
  Report Type: 
  Country: None (occurrence: None)
  Receive Date: 20120809
  Receipt Date: 20120730
  Transmission Date: 20120928
  Serious: Yes (Death)
  Sender: FDA-Public Use
  Company Number: VN-BAXTER-2012BAX013227

PATIENT
  Age: 55 Year
  Sex: Male

DRUGS (2)
  1. DIANEAL [Suspect]
     Dosage: 3 BAGS
     Route: 033
     Dates: start: 20120227
  2. DIANEAL [Suspect]
     Dosage: 1 BAG
     Route: 033
     Dates: start: 20120227

REACTIONS (1)
  - MYOCARDIAL INFARCTION [None]
